FAERS Safety Report 9947886 (Version 1)
Quarter: 2014Q1

REPORT INFORMATION
  Report Type: Report from Study
  Country: US (occurrence: US)
  Receive Date: 20140303
  Receipt Date: 20140303
  Transmission Date: 20141002
  Serious: No
  Sender: FDA-Public Use
  Company Number: US-ABBVIE-13P-163-1056395-00

PATIENT
  Sex: Female
  Weight: 49.94 kg

DRUGS (6)
  1. HUMIRA [Suspect]
     Indication: PSORIASIS
     Dates: start: 2011, end: 201301
  2. CYMBALTA [Concomitant]
     Indication: FIBROMYALGIA
  3. SYNTHROID [Concomitant]
     Indication: HYPOTHYROIDISM
  4. FLEXERIL [Concomitant]
     Indication: MUSCLE RELAXANT THERAPY
  5. VITAMIN D [Concomitant]
     Indication: PRODUCT USED FOR UNKNOWN INDICATION
  6. IRON [Concomitant]
     Indication: PRODUCT USED FOR UNKNOWN INDICATION

REACTIONS (1)
  - Drug ineffective [Not Recovered/Not Resolved]
